FAERS Safety Report 22367589 (Version 2)
Quarter: 2023Q2

REPORT INFORMATION
  Report Type: Spontaneous
  Country: PL (occurrence: PL)
  Receive Date: 20230525
  Receipt Date: 20230526
  Transmission Date: 20230722
  Serious: Yes (Other)
  Sender: FDA-Public Use
  Company Number: PL-BAXTER-2023BAX021694

PATIENT
  Age: 58 Year
  Sex: Female

DRUGS (5)
  1. DOXORUBICIN [Suspect]
     Active Substance: DOXORUBICIN
     Indication: Diffuse large B-cell lymphoma
     Dosage: RCHOP OF 6 DAYS
     Route: 065
     Dates: start: 2009, end: 2009
  2. CYCLOPHOSPHAMIDE [Suspect]
     Active Substance: CYCLOPHOSPHAMIDE
     Indication: Diffuse large B-cell lymphoma
     Dosage: RCHOP OF 6 DAYS
     Route: 065
     Dates: start: 2009, end: 2009
  3. RITUXIMAB [Suspect]
     Active Substance: RITUXIMAB
     Indication: Diffuse large B-cell lymphoma
     Dosage: RCHOP OF 6 DAYS
     Route: 065
     Dates: start: 2009, end: 2009
  4. PREDNISONE [Suspect]
     Active Substance: PREDNISONE
     Indication: Diffuse large B-cell lymphoma
     Dosage: RCHOP OF 6 DAYS
     Route: 065
     Dates: start: 2009, end: 2009
  5. VINCRISTINE [Suspect]
     Active Substance: VINCRISTINE
     Indication: Diffuse large B-cell lymphoma
     Dosage: RCHOP OF 6 DAYS
     Route: 065
     Dates: start: 2009, end: 2009

REACTIONS (2)
  - Pancytopenia [Recovered/Resolved]
  - Infection [Recovered/Resolved]

NARRATIVE: CASE EVENT DATE: 20090101
